FAERS Safety Report 19910755 (Version 2)
Quarter: 2021Q4

REPORT INFORMATION
  Report Type: Spontaneous
  Country: US (occurrence: US)
  Receive Date: 20211004
  Receipt Date: 20211012
  Transmission Date: 20220303
  Serious: No
  Sender: FDA-Public Use
  Company Number: US-TEVA-2021-US-1958273

PATIENT
  Age: 68 Year
  Sex: Male

DRUGS (1)
  1. EPINEPHRINE [Suspect]
     Active Substance: EPINEPHRINE
     Indication: Allergy to arthropod sting
     Route: 065
     Dates: start: 20210920

REACTIONS (8)
  - Feeling jittery [Recovering/Resolving]
  - Anxiety [Recovering/Resolving]
  - Tension [Recovering/Resolving]
  - Blood pressure increased [Recovering/Resolving]
  - Myalgia [Recovering/Resolving]
  - Pollakiuria [Recovering/Resolving]
  - Constipation [Recovering/Resolving]
  - Discomfort [Recovering/Resolving]

NARRATIVE: CASE EVENT DATE: 20210920
